FAERS Safety Report 11440502 (Version 1)
Quarter: 2015Q3

REPORT INFORMATION
  Report Type: Spontaneous
  Country: US (occurrence: US)
  Receive Date: 20150901
  Receipt Date: 20150901
  Transmission Date: 20151125
  Serious: No
  Sender: FDA-Public Use
  Company Number: US-ROCHE-1091982

PATIENT
  Sex: Male

DRUGS (4)
  1. DIOVAN [Concomitant]
     Active Substance: VALSARTAN
  2. RIBAVIRIN. [Suspect]
     Active Substance: RIBAVIRIN
     Indication: CHRONIC HEPATITIS C
     Dosage: DIVIDED DOSES
     Route: 048
     Dates: start: 20120625
  3. TELAPREVIR [Suspect]
     Active Substance: TELAPREVIR
     Indication: CHRONIC HEPATITIS C
     Dosage: 3 PILLS IN THE MORNING AND 3 PILLS IN THE EVENING
     Route: 065
     Dates: start: 20120625
  4. PEGASYS [Suspect]
     Active Substance: PEGINTERFERON ALFA-2A
     Indication: CHRONIC HEPATITIS C
     Route: 058
     Dates: start: 20120625

REACTIONS (6)
  - Headache [Unknown]
  - Chromaturia [Unknown]
  - Dyspnoea exertional [Unknown]
  - Dizziness [Unknown]
  - Rhinorrhoea [Unknown]
  - Faeces soft [Unknown]
